FAERS Safety Report 10062066 (Version 1)
Quarter: 2014Q2

REPORT INFORMATION
  Report Type: Spontaneous
  Country: US (occurrence: US)
  Receive Date: 20140407
  Receipt Date: 20140407
  Transmission Date: 20141212
  Serious: Yes (Hospitalization)
  Sender: FDA-Public Use
  Company Number: US-BIOGENIDEC-2014BI030209

PATIENT
  Sex: Female

DRUGS (1)
  1. TECFIDERA [Suspect]
     Indication: PRODUCT USED FOR UNKNOWN INDICATION
     Route: 048
     Dates: start: 20130801, end: 20130901

REACTIONS (10)
  - Malaise [Unknown]
  - Drug ineffective [Unknown]
  - Infection [Unknown]
  - Urinary tract infection [Unknown]
  - Multiple sclerosis relapse [Unknown]
  - Flushing [Unknown]
  - Gastric disorder [Unknown]
  - Multiple sclerosis [Unknown]
  - Mobility decreased [Unknown]
  - Gait disturbance [Unknown]
